FAERS Safety Report 19404659 (Version 1)
Quarter: 2021Q2

REPORT INFORMATION
  Report Type: Spontaneous
  Country: DE (occurrence: DE)
  Receive Date: 20210611
  Receipt Date: 20210611
  Transmission Date: 20210717
  Serious: Yes (Hospitalization)
  Sender: FDA-Public Use
  Company Number: DE-TEVA-2021-DE-1919905

PATIENT
  Age: 33 Year
  Sex: Male

DRUGS (5)
  1. QUETIAPIN [Concomitant]
     Active Substance: QUETIAPINE
     Dosage: 2 DOSAGE FORMS DAILY; 400 MG, 0?0?2?0
     Route: 048
  2. TILIDINE/NALOXONE [Concomitant]
     Active Substance: NALOXONE HYDROCHLORIDE\TILIDINE HYDROCHLORIDE
     Dosage: 3 DOSAGE FORMS DAILY; 8|100 MG, 1?1?0?1
     Route: 048
  3. DALTEPARIN [Concomitant]
     Active Substance: DALTEPARIN
     Dosage: 1 DOSAGE FORMS DAILY; 5000 IE, 0?0?1?0
     Route: 058
  4. METAMIZOL [Concomitant]
     Active Substance: METAMIZOLE SODIUM
     Dosage: 1000 MILLIGRAM DAILY; 1?1?0?0
     Route: 048
  5. RISPERIDON [Suspect]
     Active Substance: RISPERIDONE
     Dosage: 2 DOSAGE FORMS DAILY; 2 MG, 0?0?2?0
     Route: 048

REACTIONS (1)
  - Impaired healing [Unknown]

NARRATIVE: CASE EVENT DATE: 20200913
